FAERS Safety Report 20226212 (Version 1)
Quarter: 2021Q4

REPORT INFORMATION
  Report Type: Spontaneous
  Country: US (occurrence: US)
  Receive Date: 20211224
  Receipt Date: 20211224
  Transmission Date: 20220303
  Serious: No
  Sender: FDA-Public Use
  Company Number: US-ELI_LILLY_AND_COMPANY-US202112009954

PATIENT
  Sex: Female

DRUGS (1)
  1. ERBITUX [Suspect]
     Active Substance: CETUXIMAB
     Indication: Anal cancer
     Dosage: UNK UNK, UNKNOWN (736 MG OVER 120 MIN, THEN 460 MG ONCE WEEKLY OVER 60 MIN)
     Route: 065

REACTIONS (1)
  - Illness [Unknown]
